FAERS Safety Report 5563101-0 (Version None)
Quarter: 2007Q4

REPORT INFORMATION
  Report Type: 
  Country: None (occurrence: None)
  Receive Date: 20071217
  Receipt Date: 20071213
  Transmission Date: 20080405
  Serious: Yes (Hospitalization)
  Sender: FDA-Public Use
  Company Number: A0699167A

PATIENT
  Sex: Female

DRUGS (2)
  1. IMITREX [Suspect]
     Indication: MIGRAINE
     Route: 058
  2. LAMICTAL [Suspect]
     Indication: CONVULSION
     Dosage: 200MG TWICE PER DAY
     Route: 048
     Dates: start: 20071101, end: 20071210

REACTIONS (25)
  - ABASIA [None]
  - ANXIETY [None]
  - APHASIA [None]
  - APRAXIA [None]
  - ARTERIOVENOUS MALFORMATION [None]
  - ASTHENIA [None]
  - BRAIN DAMAGE [None]
  - CEREBRAL HAEMORRHAGE [None]
  - DISSOCIATION [None]
  - DYSLEXIA [None]
  - DYSPHONIA [None]
  - ERYTHEMA [None]
  - FALL [None]
  - HEADACHE [None]
  - HYPOTONIA [None]
  - LETHARGY [None]
  - MONOPLEGIA [None]
  - MOTOR DYSFUNCTION [None]
  - MUSCLE SPASMS [None]
  - MUSCULOSKELETAL STIFFNESS [None]
  - PALPITATIONS [None]
  - PANIC ATTACK [None]
  - RASH ERYTHEMATOUS [None]
  - RESTLESSNESS [None]
  - SKIN DISCOLOURATION [None]
